FAERS Safety Report 7449656-X (Version None)
Quarter: 2011Q2

REPORT INFORMATION
  Report Type: 
  Country: None (occurrence: None)
  Receive Date: 20110420
  Receipt Date: 20110407
  Transmission Date: 20111010
  Serious: Yes (Hospitalization)
  Sender: FDA-Public Use
  Company Number: 2011MA003547

PATIENT
  Age: 21 Year
  Sex: Female

DRUGS (4)
  1. LIDOCAINE [Suspect]
     Indication: ANAESTHESIA
     Dosage: 40 MG; 1X;
  2. ATRACURIUM BESILATE [Concomitant]
  3. FENTANYL [Concomitant]
  4. PROPOFOL [Concomitant]

REACTIONS (6)
  - ANAESTHETIC COMPLICATION [None]
  - TACHYCARDIA [None]
  - LUNG CONSOLIDATION [None]
  - HYPOTENSION [None]
  - FAT EMBOLISM [None]
  - PETECHIAE [None]
